FAERS Safety Report 13286266 (Version 1)
Quarter: 2017Q1

REPORT INFORMATION
  Report Type: Report from Study
  Country: None (occurrence: US)
  Receive Date: 20170301
  Receipt Date: 20170301
  Transmission Date: 20170428
  Serious: Yes (Other)
  Sender: FDA-Public Use
  Company Number: US-ABBVIE-17K-163-1835523-00

PATIENT
  Sex: Female
  Weight: 71.28 kg

DRUGS (3)
  1. TORADOL [Suspect]
     Active Substance: KETOROLAC TROMETHAMINE
     Indication: RASH PRURITIC
     Route: 065
     Dates: start: 2009, end: 2009
  2. ACYCLOVIR. [Suspect]
     Active Substance: ACYCLOVIR
     Indication: RASH PRURITIC
     Route: 065
     Dates: start: 2009, end: 2009
  3. HUMIRA [Suspect]
     Active Substance: ADALIMUMAB
     Indication: RHEUMATOID ARTHRITIS
     Route: 058
     Dates: end: 2009

REACTIONS (2)
  - Rash pruritic [Recovered/Resolved]
  - Renal failure [Recovered/Resolved]

NARRATIVE: CASE EVENT DATE: 2009
